FAERS Safety Report 17740793 (Version 1)
Quarter: 2020Q2

REPORT INFORMATION
  Report Type: Spontaneous
  Country: US (occurrence: US)
  Receive Date: 20200504
  Receipt Date: 20200504
  Transmission Date: 20200714
  Serious: Yes (Other)
  Sender: FDA-Public Use
  Company Number: None

PATIENT
  Age: 57 Year
  Sex: Female
  Weight: 67.5 kg

DRUGS (10)
  1. MULTI-VITAMINS [Concomitant]
  2. MIGRANOL [Concomitant]
  3. MELOXICAM. [Concomitant]
     Active Substance: MELOXICAM
  4. COENZYME Q10 [Concomitant]
     Active Substance: UBIDECARENONE
  5. EFFEXOR [Concomitant]
     Active Substance: VENLAFAXINE HYDROCHLORIDE
  6. CLARITON [Concomitant]
     Active Substance: UNSPECIFIED INGREDIENT
  7. LEVOOTHYROXINE [Concomitant]
  8. CALCIUM [Concomitant]
     Active Substance: CALCIUM
  9. BENADRYL [Concomitant]
     Active Substance: DIPHENHYDRAMINE HYDROCHLORIDE
  10. EMGALITY [Suspect]
     Active Substance: GALCANEZUMAB-GNLM
     Indication: HEADACHE
     Dosage: ?          QUANTITY:1 INJECTION(S);OTHER FREQUENCY:MONTHLY;?
     Route: 058

REACTIONS (5)
  - Contusion [None]
  - Therapeutic product effect incomplete [None]
  - Skin discolouration [None]
  - Pruritus [None]
  - Haemorrhage [None]

NARRATIVE: CASE EVENT DATE: 20200331
